FAERS Safety Report 24653990 (Version 1)
Quarter: 2024Q4

REPORT INFORMATION
  Report Type: Spontaneous
  Country: HR (occurrence: HR)
  Receive Date: 20241122
  Receipt Date: 20241122
  Transmission Date: 20250115
  Serious: Yes (Life-Threatening)
  Sender: MYLAN
  Company Number: None

PATIENT
  Age: 82 Year
  Sex: Female
  Weight: 55 kg

DRUGS (1)
  1. EPLERENONE [Suspect]
     Active Substance: EPLERENONE
     Indication: Cardiac disorder
     Dosage: 1X1
     Route: 048
     Dates: start: 20240930, end: 202410

REACTIONS (3)
  - Choking [Recovering/Resolving]
  - Heart rate decreased [Recovering/Resolving]
  - Hyperhidrosis [Recovering/Resolving]

NARRATIVE: CASE EVENT DATE: 20240930
